FAERS Safety Report 19441454 (Version 1)
Quarter: 2021Q2

REPORT INFORMATION
  Report Type: Spontaneous
  Country: US (occurrence: US)
  Receive Date: 20210621
  Receipt Date: 20210621
  Transmission Date: 20210717
  Serious: No
  Sender: FDA-Public Use
  Company Number: US-BAUSCH-BL-2021-015520

PATIENT
  Sex: Male

DRUGS (2)
  1. 6?MERCAPTOPURINE [Concomitant]
     Active Substance: MERCAPTOPURINE
     Indication: PRODUCT USED FOR UNKNOWN INDICATION
  2. FLUOROURACIL CREAM [Suspect]
     Active Substance: FLUOROURACIL
     Indication: PRECANCEROUS CONDITION
     Route: 061

REACTIONS (2)
  - Vomiting [Recovering/Resolving]
  - Dizziness [Recovering/Resolving]
